FAERS Safety Report 9133323 (Version 1)
Quarter: 2013Q1

REPORT INFORMATION
  Report Type: Spontaneous
  Country: US (occurrence: US)
  Receive Date: 20130301
  Receipt Date: 20130301
  Transmission Date: 20140127
  Serious: Yes (Hospitalization, Other)
  Sender: FDA-Public Use
  Company Number: US-BAXTER-2013BAX007187

PATIENT
  Age: 63 Year
  Sex: Female

DRUGS (1)
  1. DIANEAL LOW CALCIUM [Suspect]
     Indication: PERITONEAL DIALYSIS
     Route: 033

REACTIONS (6)
  - Influenza [Recovering/Resolving]
  - Gastrointestinal viral infection [Recovering/Resolving]
  - Clostridium difficile infection [Recovering/Resolving]
  - Dehydration [Recovering/Resolving]
  - Fluid retention [Unknown]
  - Hypertension [Unknown]
